FAERS Safety Report 24695765 (Version 1)
Quarter: 2024Q4

REPORT INFORMATION
  Report Type: Spontaneous
  Country: CL (occurrence: CL)
  Receive Date: 20241204
  Receipt Date: 20241204
  Transmission Date: 20250115
  Serious: No
  Sender: ALKEM
  Company Number: CL-ALKEM LABORATORIES LIMITED-CL-ALKEM-2024-09195

PATIENT
  Age: 72 Year
  Sex: Female

DRUGS (1)
  1. METFORMIN HYDROCHLORIDE [Suspect]
     Active Substance: METFORMIN HYDROCHLORIDE
     Indication: Diabetes mellitus
     Dosage: UNK
     Route: 065

REACTIONS (2)
  - Macrocytosis [Unknown]
  - Vitamin B12 deficiency [Unknown]
